FAERS Safety Report 7377633-6 (Version None)
Quarter: 2011Q1

REPORT INFORMATION
  Report Type: 
  Country: None (occurrence: None)
  Receive Date: 20110316
  Receipt Date: 20110304
  Transmission Date: 20110831
  Serious: Yes (Other)
  Sender: FDA-Public Use
  Company Number: 028816

PATIENT
  Age: 31 Year
  Sex: Female
  Weight: 112 kg

DRUGS (1)
  1. KEPPRA [Suspect]
     Dosage: 1000 MG QD
     Dates: start: 20080415, end: 20100301

REACTIONS (6)
  - SUICIDAL IDEATION [None]
  - DEPRESSION [None]
  - FEELING ABNORMAL [None]
  - DRUG EXPOSURE DURING PREGNANCY [None]
  - ANXIETY [None]
  - MOOD SWINGS [None]
